FAERS Safety Report 14459649 (Version 1)
Quarter: 2018Q1

REPORT INFORMATION
  Report Type: Spontaneous
  Country: US (occurrence: US)
  Receive Date: 20180129
  Receipt Date: 20180129
  Transmission Date: 20180509
  Serious: No
  Sender: FDA-Public Use
  Company Number: None

PATIENT
  Age: 39 Year
  Sex: Female
  Weight: 91.35 kg

DRUGS (5)
  1. DESLYUM [Concomitant]
  2. TYLENOL [Concomitant]
     Active Substance: ACETAMINOPHEN
  3. MUXINEX DM [Concomitant]
  4. MOTRIN [Concomitant]
     Active Substance: IBUPROFEN
  5. OSELTAMIVIR PHOSPHATE CAPSULES USP [Suspect]
     Active Substance: OSELTAMIVIR PHOSPHATE
     Indication: INFLUENZA
     Dosage: ?          QUANTITY:10 CAPSULE(S);?
     Route: 048
     Dates: start: 20180125, end: 20180129

REACTIONS (4)
  - Dizziness [None]
  - Drug ineffective [None]
  - Musculoskeletal pain [None]
  - Neck pain [None]

NARRATIVE: CASE EVENT DATE: 20180127
